FAERS Safety Report 25140520 (Version 1)
Quarter: 2025Q1

REPORT INFORMATION
  Report Type: Spontaneous
  Country: US (occurrence: None)
  Receive Date: 20250329
  Receipt Date: 20250329
  Transmission Date: 20250409
  Serious: Yes (Hospitalization)
  Sender: FDA-CTU
  Company Number: None

PATIENT
  Age: 59 Year
  Sex: Male
  Weight: 120 kg

DRUGS (1)
  1. XELODA [Suspect]
     Active Substance: CAPECITABINE
     Dates: end: 20250305

REACTIONS (13)
  - Enterocolitis infectious [None]
  - Pancytopenia [None]
  - Radiation inflammation [None]
  - Hypotension [None]
  - Diarrhoea haemorrhagic [None]
  - Fluid retention [None]
  - Oedema peripheral [None]
  - Hypervolaemia [None]
  - Dehydration [None]
  - Red blood cell transfusion [None]
  - Mucosal inflammation [None]
  - Colitis [None]
  - Neutropenia [None]

NARRATIVE: CASE EVENT DATE: 20250306
